FAERS Safety Report 6651333-X (Version None)
Quarter: 2010Q1

REPORT INFORMATION
  Report Type: 
  Country: None (occurrence: None)
  Receive Date: 20100325
  Receipt Date: 20100316
  Transmission Date: 20100710
  Serious: Yes (Other)
  Sender: FDA-Public Use
  Company Number: US-BRISTOL-MYERS SQUIBB COMPANY-15020332

PATIENT

DRUGS (1)
  1. VIDEX [Suspect]
     Indication: HIV INFECTION
     Dates: end: 20050101

REACTIONS (1)
  - HEPATIC FIBROSIS [None]
